FAERS Safety Report 4472209-2 (Version None)
Quarter: 2004Q4

REPORT INFORMATION
  Report Type: 
  Country: None (occurrence: None)
  Receive Date: 20041012
  Receipt Date: 20041005
  Transmission Date: 20050328
  Serious: Yes (Life-Threatening, Hospitalization, Disabling)
  Sender: FDA-Public Use
  Company Number: US-MERCK-0410USA00705

PATIENT
  Age: 48 Year
  Sex: Male

DRUGS (5)
  1. PERCOCET [Concomitant]
     Route: 065
  2. LOTREL [Concomitant]
     Route: 065
  3. DURAGESIC [Concomitant]
     Route: 065
  4. VIOXX [Suspect]
     Indication: ARTHRALGIA
     Route: 048
     Dates: start: 20000101, end: 20040930
  5. AMBIEN [Concomitant]
     Route: 065

REACTIONS (6)
  - AMNESIA [None]
  - BLOOD PRESSURE INCREASED [None]
  - DYSGRAPHIA [None]
  - HEADACHE [None]
  - INTRACRANIAL ANEURYSM [None]
  - OBSESSIVE-COMPULSIVE DISORDER [None]
